FAERS Safety Report 9425808 (Version 2)
Quarter: 2013Q3

REPORT INFORMATION
  Report Type: Spontaneous
  Country: US (occurrence: US)
  Receive Date: 20130729
  Receipt Date: 20130731
  Transmission Date: 20140515
  Serious: Yes (Other)
  Sender: FDA-Public Use
  Company Number: US-ABBOTT-13P-163-1124251-00

PATIENT
  Sex: Female
  Weight: 64.92 kg

DRUGS (2)
  1. HUMIRA [Suspect]
     Indication: RHEUMATOID ARTHRITIS
     Dates: start: 2004, end: 201206
  2. UNKNOWN ANTIHYPERTENSIVE [Concomitant]
     Indication: HYPERTENSION

REACTIONS (6)
  - Skin lesion [Not Recovered/Not Resolved]
  - Neoplasm malignant [Recovering/Resolving]
  - Palpitations [Recovered/Resolved]
  - Local swelling [Recovered/Resolved]
  - Dyspnoea [Recovered/Resolved]
  - Arrhythmia [Not Recovered/Not Resolved]
